FAERS Safety Report 6415522-1 (Version None)
Quarter: 2009Q4

REPORT INFORMATION
  Report Type: 
  Country: None (occurrence: None)
  Receive Date: 20091027
  Receipt Date: 20091016
  Transmission Date: 20100525
  Serious: Yes (Hospitalization, Other)
  Sender: FDA-Public Use
  Company Number: US-JNJFOC-20090804134

PATIENT
  Sex: Female
  Weight: 63.05 kg

DRUGS (16)
  1. REMICADE [Suspect]
     Route: 042
     Dates: start: 20040501, end: 20090601
  2. REMICADE [Suspect]
     Route: 042
     Dates: start: 20040501, end: 20090601
  3. REMICADE [Suspect]
     Route: 042
     Dates: start: 20040501, end: 20090601
  4. REMICADE [Suspect]
     Indication: CROHN'S DISEASE
     Route: 042
     Dates: start: 20040501, end: 20090601
  5. CELEBREX [Suspect]
     Indication: DRUG USE FOR UNKNOWN INDICATION
     Route: 065
  6. HYOMAX [Concomitant]
  7. SYNTHROID [Concomitant]
  8. FLAGYL [Concomitant]
  9. LEXAPRO [Concomitant]
  10. CALCITRIOL [Concomitant]
  11. PLAVIX [Concomitant]
  12. IMDUR [Concomitant]
  13. FOLIC ACID [Concomitant]
  14. LACTULOSE [Concomitant]
  15. ASPIRIN [Concomitant]
  16. CIPROFLOXACIN [Concomitant]

REACTIONS (3)
  - PANCYTOPENIA [None]
  - RENAL DISORDER [None]
  - TRANSIENT ISCHAEMIC ATTACK [None]
